FAERS Safety Report 8791198 (Version 1)
Quarter: 2012Q4

REPORT INFORMATION
  Report Type: Spontaneous
  Country: US (occurrence: None)
  Receive Date: 20120913
  Receipt Date: 20120913
  Transmission Date: 20130627
  Serious: Yes (Life-Threatening, Hospitalization, Other)
  Sender: FDA-Public Use
  Company Number: None

PATIENT
  Age: 58 Year
  Sex: Female
  Weight: 69.4 kg

DRUGS (1)
  1. JANUVIA [Suspect]
     Route: 048
     Dates: start: 201205, end: 201207

REACTIONS (4)
  - Pancreatitis [None]
  - Hypotension [None]
  - Asthenia [None]
  - Chest pain [None]
